FAERS Safety Report 14797756 (Version 1)
Quarter: 2018Q2

REPORT INFORMATION
  Report Type: Report from Study
  Country: US (occurrence: US)
  Receive Date: 20180424
  Receipt Date: 20180424
  Transmission Date: 20180711
  Serious: Yes (Other)
  Sender: FDA-Public Use
  Company Number: US-BIOGEN-2018BI00560228

PATIENT
  Age: 29 Year
  Sex: Female
  Weight: 162.99 kg

DRUGS (1)
  1. TECFIDERA [Suspect]
     Active Substance: DIMETHYL FUMARATE
     Indication: MULTIPLE SCLEROSIS
     Dosage: STARTING DOSE
     Route: 048
     Dates: start: 20180419

REACTIONS (6)
  - Aphasia [Unknown]
  - Dyspnoea [Unknown]
  - Memory impairment [Unknown]
  - Swollen tongue [Unknown]
  - Pharyngeal oedema [Unknown]
  - Headache [Unknown]

NARRATIVE: CASE EVENT DATE: 20180419
